FAERS Safety Report 11493917 (Version 1)
Quarter: 2015Q3

REPORT INFORMATION
  Report Type: Spontaneous
  Country: US (occurrence: US)
  Receive Date: 20150911
  Receipt Date: 20150911
  Transmission Date: 20151125
  Serious: Yes (Hospitalization)
  Sender: FDA-Public Use
  Company Number: US-ROCHE-1024939

PATIENT
  Sex: Male

DRUGS (7)
  1. PEGASYS [Interacting]
     Active Substance: PEGINTERFERON ALFA-2A
     Indication: CHRONIC HEPATITIS C
     Route: 058
     Dates: end: 2006
  2. PEGASYS [Interacting]
     Active Substance: PEGINTERFERON ALFA-2A
     Route: 058
     Dates: start: 20111214
  3. RIBASPHERE [Interacting]
     Active Substance: RIBAVIRIN
     Route: 048
     Dates: start: 20111214
  4. LISINOPRIL. [Concomitant]
     Active Substance: LISINOPRIL
     Indication: HYPERTENSION
     Route: 065
  5. RIBASPHERE [Interacting]
     Active Substance: RIBAVIRIN
     Indication: CHRONIC HEPATITIS C
     Route: 048
     Dates: end: 2006
  6. NORVASC [Suspect]
     Active Substance: AMLODIPINE BESYLATE
     Indication: PRODUCT USED FOR UNKNOWN INDICATION
  7. INCIVEK [Interacting]
     Active Substance: TELAPREVIR
     Indication: CHRONIC HEPATITIS C
     Route: 065
     Dates: start: 20111214

REACTIONS (6)
  - Headache [Unknown]
  - Pruritus [Unknown]
  - Insomnia [Unknown]
  - Vertigo [Unknown]
  - Loss of consciousness [Unknown]
  - Pain [Unknown]
